FAERS Safety Report 26179243 (Version 1)
Quarter: 2025Q4

REPORT INFORMATION
  Report Type: Report from Study
  Country: KR (occurrence: KR)
  Receive Date: 20251219
  Receipt Date: 20251219
  Transmission Date: 20260117
  Serious: Yes (Death, Hospitalization, Other)
  Sender: ABBVIE
  Company Number: KR-ABBVIE-4300043

PATIENT
  Age: 89 Year
  Sex: Male
  Weight: 61 kg

DRUGS (47)
  1. VENCLEXTA [Suspect]
     Active Substance: VENETOCLAX
     Indication: Acute myeloid leukaemia
     Route: 048
     Dates: start: 20230103, end: 20230109
  2. VENCLEXTA [Suspect]
     Active Substance: VENETOCLAX
     Indication: Acute myeloid leukaemia
     Route: 048
     Dates: start: 20221217, end: 20221226
  3. VENCLEXTA [Suspect]
     Active Substance: VENETOCLAX
     Indication: Acute myeloid leukaemia
     Route: 048
     Dates: start: 20221216, end: 20221216
  4. VENCLEXTA [Suspect]
     Active Substance: VENETOCLAX
     Indication: Acute myeloid leukaemia
     Route: 048
     Dates: start: 20221215, end: 20221215
  5. VENCLEXTA [Suspect]
     Active Substance: VENETOCLAX
     Indication: Acute myeloid leukaemia
     Route: 048
     Dates: start: 20230111, end: 20230115
  6. VENCLEXTA [Suspect]
     Active Substance: VENETOCLAX
     Indication: Acute myeloid leukaemia
     Route: 048
     Dates: start: 20221214, end: 20221214
  7. VENCLEXTA [Suspect]
     Active Substance: VENETOCLAX
     Indication: Acute myeloid leukaemia
     Route: 048
     Dates: start: 20230125, end: 20230203
  8. CRESTOR [Concomitant]
     Active Substance: ROSUVASTATIN CALCIUM
     Indication: Dyslipidaemia
     Route: 048
     Dates: start: 202212, end: 20221227
  9. MIRABEGRON [Concomitant]
     Active Substance: MIRABEGRON
     Indication: Benign prostatic hyperplasia
     Route: 048
     Dates: start: 20220722, end: 20230204
  10. METRONIDAZOLE [Concomitant]
     Active Substance: METRONIDAZOLE
     Indication: Anal fistula
     Dosage: TIME INTERVAL: 0.33333333 DAYS: INJ 100ML (BAG)
     Route: 042
     Dates: start: 20230120, end: 20230206
  11. PREPENEM [Concomitant]
     Indication: Anal abscess
     Dosage: INJ
     Route: 042
     Dates: start: 20230102, end: 20230109
  12. PRUCALOPRIDE SUCCINATE [Concomitant]
     Active Substance: PRUCALOPRIDE SUCCINATE
     Indication: Constipation
     Route: 048
     Dates: start: 20221221, end: 20221224
  13. PRUCALOPRIDE SUCCINATE [Concomitant]
     Active Substance: PRUCALOPRIDE SUCCINATE
     Indication: Constipation
     Route: 048
     Dates: start: 20230105, end: 20230130
  14. LINAGLIPTIN\METFORMIN HYDROCHLORIDE [Concomitant]
     Active Substance: LINAGLIPTIN\METFORMIN HYDROCHLORIDE
     Indication: Diabetes mellitus
     Dosage: TAB 2.5/850MG
     Route: 048
     Dates: start: 20221220, end: 20221227
  15. LINAGLIPTIN\METFORMIN HYDROCHLORIDE [Concomitant]
     Active Substance: LINAGLIPTIN\METFORMIN HYDROCHLORIDE
     Indication: Diabetes mellitus
     Dosage: 2.5/850MG
     Route: 048
     Dates: start: 20221207, end: 20221220
  16. HERBALS [Concomitant]
     Active Substance: HERBALS
     Indication: Dyspepsia
     Dosage: TIME INTERVAL: 0.33333333 DAYS
     Route: 048
     Dates: start: 20230116, end: 20230206
  17. ALLOPURINOL [Concomitant]
     Active Substance: ALLOPURINOL
     Indication: Tumour lysis syndrome
     Route: 048
     Dates: start: 20221209, end: 20221218
  18. HARMONILAN [Concomitant]
     Indication: Decreased appetite
     Dosage: SOLN
     Route: 048
     Dates: start: 20221228, end: 20230106
  19. MEGACE F [Concomitant]
     Indication: Decreased appetite
     Dosage: SUSP
     Route: 048
     Dates: start: 20221208, end: 20230204
  20. MAGNESIUM HYDROXIDE [Concomitant]
     Active Substance: MAGNESIUM HYDROXIDE
     Indication: Constipation
     Dosage: TIME INTERVAL: 0.33333333 DAYS
     Route: 048
     Dates: start: 20221213, end: 20230116
  21. MAGNESIUM HYDROXIDE [Concomitant]
     Active Substance: MAGNESIUM HYDROXIDE
     Indication: Constipation
     Route: 048
     Dates: start: 20230104, end: 20230116
  22. ZYVOX [Concomitant]
     Active Substance: LINEZOLID
     Indication: Enterococcal infection
     Route: 048
     Dates: start: 20230122, end: 20230206
  23. Mago [Concomitant]
     Indication: Anal fistula
     Dosage: TIME INTERVAL: 0.33333333 DAYS: 250MG
     Route: 048
     Dates: start: 20230123, end: 20230204
  24. NALOXONE HYDROCHLORIDE\OXYCODONE HYDROCHLORIDE [Concomitant]
     Active Substance: NALOXONE HYDROCHLORIDE\OXYCODONE HYDROCHLORIDE
     Indication: Anal abscess
     Dosage: TAB 10/5MG
     Route: 048
     Dates: start: 20221214, end: 20230204
  25. MICARDIS [Concomitant]
     Active Substance: TELMISARTAN
     Indication: Hypertension
     Route: 048
     Dates: start: 20221207, end: 20221227
  26. CALCIUM POLYCARBOPHIL [Concomitant]
     Active Substance: CALCIUM POLYCARBOPHIL
     Indication: Anal fistula
     Dosage: TIME INTERVAL: 0.33333333 DAYS
     Route: 048
     Dates: start: 20230118, end: 20230206
  27. Vacrax [Concomitant]
     Indication: Infection prophylaxis
     Dosage: TAB 200MG
     Route: 048
     Dates: start: 20221213, end: 20221228
  28. AMINO ACIDS\DEXTROSE\ELECTROLYTES NOS\SOYBEAN OIL [Concomitant]
     Active Substance: AMINO ACIDS\DEXTROSE\ELECTROLYTES NOS\SOYBEAN OIL
     Indication: Decreased appetite
     Dosage: INJ 986ML
     Route: 042
     Dates: start: 20221228, end: 20230106
  29. FREAMINE III NOS [Concomitant]
     Active Substance: AMINO ACIDS
     Indication: Decreased appetite
     Dosage: 10% INJ 500ML (BAG)
     Route: 042
     Dates: start: 20221214, end: 20221228
  30. OXYCODONE HYDROCHLORIDE [Concomitant]
     Active Substance: OXYCODONE HYDROCHLORIDE
     Indication: Pain in extremity
     Route: 048
     Dates: start: 20230121, end: 20230126
  31. MEROPENEM [Concomitant]
     Active Substance: MEROPENEM
     Indication: Diarrhoea
     Dosage: INJ 1G
     Route: 042
     Dates: start: 20221226, end: 20230102
  32. TAPOCIN [Concomitant]
     Indication: Enterococcal infection
     Dosage: TIME INTERVAL: 0.33333333 DAYS: INJ 400MG
     Route: 042
     Dates: start: 20230113, end: 20230120
  33. ADALAT [Concomitant]
     Active Substance: NIFEDIPINE
     Indication: Hypertension
     Route: 048
     Dates: start: 20221229, end: 20230204
  34. HUMULIN R [Concomitant]
     Active Substance: INSULIN HUMAN
     Indication: Diabetes mellitus
     Dosage: INJ 100IU
     Route: 058
     Dates: start: 20221211, end: 20221227
  35. NORZYME [Concomitant]
     Indication: Dyspepsia
     Dosage: TIME INTERVAL: 0.33333333 DAYS
     Route: 048
     Dates: start: 20230114, end: 20230128
  36. MAXIPIME [Concomitant]
     Active Substance: CEFEPIME HYDROCHLORIDE
     Indication: Bacteraemia
     Dosage: TIME INTERVAL: 0.33333333 DAYS: INJ 1G
     Route: 048
     Dates: start: 20221207, end: 20221226
  37. MAXIPIME [Concomitant]
     Active Substance: CEFEPIME HYDROCHLORIDE
     Indication: Bacteraemia
     Route: 042
     Dates: start: 20230112, end: 20230206
  38. WINUF [Concomitant]
     Indication: Decreased appetite
     Dosage: INJ 736ML
     Route: 042
     Dates: start: 20230107, end: 20230109
  39. HARNAL [Concomitant]
     Active Substance: TAMSULOSIN HYDROCHLORIDE
     Indication: Benign prostatic hyperplasia
     Route: 048
     Dates: start: 20220722, end: 20230204
  40. TASNA [Concomitant]
     Indication: Acidosis
     Dosage: TIME INTERVAL: 0.33333333 DAYS
     Route: 048
     Dates: start: 20221207, end: 20230102
  41. SULFAMETHOXAZOLE\TRIMETHOPRIM [Concomitant]
     Active Substance: SULFAMETHOXAZOLE\TRIMETHOPRIM
     Indication: Infection prophylaxis
     Route: 048
     Dates: start: 20221214, end: 20221227
  42. Dulackhan easy [Concomitant]
     Indication: Constipation
     Route: 048
     Dates: start: 20221207, end: 20221225
  43. Dulackhan easy [Concomitant]
     Indication: Constipation
     Route: 048
     Dates: start: 20221231, end: 20230204
  44. DEBIKIN [Concomitant]
     Indication: Acute myeloid leukaemia
     Route: 042
     Dates: start: 20221214, end: 20221218
  45. NOXAFIL [Concomitant]
     Active Substance: POSACONAZOLE
     Indication: Infection prophylaxis
     Dosage: GASTRO RESISTANT TAB 100MG
     Route: 048
     Dates: start: 20221214, end: 20221227
  46. Hydrine [Concomitant]
     Indication: Acute myeloid leukaemia
     Route: 042
     Dates: start: 20221213, end: 20221218
  47. Mytonin [Concomitant]
     Indication: Benign prostatic hyperplasia
     Dosage: TIME INTERVAL: 0.33333333 DAYS
     Route: 048
     Dates: start: 20221227, end: 20221228

REACTIONS (1)
  - Acute myeloid leukaemia [Fatal]

NARRATIVE: CASE EVENT DATE: 20230201
